FAERS Safety Report 7762964-8 (Version None)
Quarter: 2011Q3

REPORT INFORMATION
  Report Type: 
  Country: None (occurrence: None)
  Receive Date: 20110920
  Receipt Date: 20110915
  Transmission Date: 20111222
  Serious: Yes (Hospitalization)
  Sender: FDA-Public Use
  Company Number: GB-GLAXOSMITHKLINE-B0745534A

PATIENT
  Sex: Female

DRUGS (15)
  1. VENTOLIN HFA [Suspect]
     Indication: ASTHMA
     Route: 055
  2. ASMASAL [Concomitant]
     Dosage: 2PUFF AS REQUIRED
  3. LANOXIN [Concomitant]
     Dosage: 62.5MCG TWICE PER DAY
  4. OMEPRAZOLE [Concomitant]
     Dosage: 20MG PER DAY
  5. LETROZOLE [Concomitant]
     Dosage: 2.5MG PER DAY
  6. BECONASE AQUEOUS [Concomitant]
     Route: 045
  7. ISOSORBIDE MONONITRATE [Concomitant]
     Dosage: 60MG TWICE PER DAY
  8. FEXOFENADINE HCL [Concomitant]
     Dosage: 120MG PER DAY
  9. PREDNISOLONE [Concomitant]
     Dosage: 5MG TWICE PER DAY
  10. ACETAMINOPHEN [Concomitant]
     Dosage: 500MG AS REQUIRED
  11. CALCEOS [Concomitant]
     Dosage: 1TAB TWICE PER DAY
  12. FUROSEMIDE [Concomitant]
     Dosage: 40MG PER DAY
  13. ALENDRONIC ACID [Concomitant]
     Dosage: 70MG WEEKLY
  14. SERETIDE [Concomitant]
     Dosage: 2PUFF TWICE PER DAY
     Route: 055
  15. WARFARIN SODIUM [Concomitant]

REACTIONS (1)
  - THROAT TIGHTNESS [None]
